FAERS Safety Report 4464169-5 (Version None)
Quarter: 2004Q4

REPORT INFORMATION
  Report Type: 
  Country: None (occurrence: None)
  Receive Date: 20041001
  Receipt Date: 20040922
  Transmission Date: 20050328
  Serious: Yes (Hospitalization)
  Sender: FDA-Public Use
  Company Number: FR-ROCHE-381273

PATIENT
  Age: 61 Year
  Sex: Female

DRUGS (2)
  1. LARIAM [Suspect]
     Indication: MALARIA
     Route: 048
     Dates: start: 20040901, end: 20040902
  2. ASPIRIN [Concomitant]
     Indication: PYREXIA
     Route: 048
     Dates: start: 20040901

REACTIONS (6)
  - CONFUSIONAL STATE [None]
  - DELIRIUM [None]
  - DIARRHOEA [None]
  - DISORIENTATION [None]
  - GASTROINTESTINAL DISORDER [None]
  - PSYCHOTIC DISORDER [None]
